FAERS Safety Report 4870046-8 (Version None)
Quarter: 2005Q4

REPORT INFORMATION
  Report Type: 
  Country: None (occurrence: None)
  Receive Date: 20051223
  Receipt Date: 20051216
  Transmission Date: 20060501
  Serious: Yes (Hospitalization, Other)
  Sender: FDA-Public Use
  Company Number: KII-2005-0020348

PATIENT
  Age: 66 Year
  Sex: Female

DRUGS (8)
  1. OXYCODONE HCL [Suspect]
     Dosage: ORAL
     Route: 048
  2. CYCLOBENZAPRINE(CYCLOBENZAPRINE) [Suspect]
     Dosage: ORAL
     Route: 048
  3. SSRI [Suspect]
     Dosage: ORAL
     Route: 048
  4. ANTIPSYCHOTICS [Suspect]
     Dosage: ORAL
     Route: 048
  5. ANTIEPILEPTICS [Suspect]
     Dosage: ORAL
     Route: 048
  6. BETA BLOCKING AGENTS [Suspect]
     Dosage: ORAL
     Route: 048
  7. BENZODIAZEPINE DERIVATIVES [Suspect]
     Dosage: ORAL
     Route: 048
  8. PROTON PUMP INHIBITOR [Suspect]
     Dosage: ORAL
     Route: 048

REACTIONS (8)
  - BLOOD PRESSURE INCREASED [None]
  - CONFUSIONAL STATE [None]
  - FATIGUE [None]
  - LOSS OF CONSCIOUSNESS [None]
  - MENTAL STATUS CHANGES [None]
  - MULTIPLE DRUG OVERDOSE [None]
  - PSYCHOTIC DISORDER [None]
  - WRIST FRACTURE [None]
